FAERS Safety Report 5057253-9 (Version None)
Quarter: 2006Q3

REPORT INFORMATION
  Report Type: 
  Country: None (occurrence: None)
  Receive Date: 20060721
  Receipt Date: 20050705
  Transmission Date: 20061208
  Serious: No
  Sender: FDA-Public Use
  Company Number: US-GLAXOSMITHKLINE-A0564971A

PATIENT
  Age: 66 Year
  Sex: Female

DRUGS (11)
  1. AVANDIA [Suspect]
     Dosage: 4MG PER DAY
     Route: 048
     Dates: start: 20050601
  2. AVANDIA [Concomitant]
  3. METFORMIN [Concomitant]
  4. TRICOR [Concomitant]
  5. LASIX [Concomitant]
  6. UNIVASC [Concomitant]
  7. POTASSIUM [Concomitant]
  8. SYNTHROID [Concomitant]
  9. METOPROLOL [Concomitant]
  10. OSCAL [Concomitant]
  11. ASPIRIN [Concomitant]

REACTIONS (1)
  - BLOOD GLUCOSE INCREASED [None]
